FAERS Safety Report 22117725 (Version 1)
Quarter: 2023Q1

REPORT INFORMATION
  Report Type: Spontaneous
  Country: IR (occurrence: IR)
  Receive Date: 20230321
  Receipt Date: 20230321
  Transmission Date: 20230418
  Serious: Yes (Other)
  Sender: FDA-Public Use
  Company Number: IR-SPC-000215

PATIENT
  Age: 28 Year
  Sex: Female

DRUGS (2)
  1. CLINDAMYCIN [Suspect]
     Active Substance: CLINDAMYCIN
     Indication: COVID-19
     Route: 065
     Dates: start: 202108, end: 202108
  2. AMPICILLIN [Suspect]
     Active Substance: AMPICILLIN
     Indication: COVID-19
     Route: 065
     Dates: start: 202108, end: 202108

REACTIONS (7)
  - Generalised tonic-clonic seizure [Unknown]
  - Thrombotic thrombocytopenic purpura [Unknown]
  - Anuria [Unknown]
  - Glomerular filtration rate decreased [Unknown]
  - Pneumonia klebsiella [Unknown]
  - Product use in unapproved indication [Unknown]
  - Exposure during pregnancy [Unknown]

NARRATIVE: CASE EVENT DATE: 20210801
